FAERS Safety Report 22163254 (Version 1)
Quarter: 2023Q2

REPORT INFORMATION
  Report Type: Spontaneous
  Country: US (occurrence: US)
  Receive Date: 20230401
  Receipt Date: 20230401
  Transmission Date: 20230721
  Serious: No
  Sender: FDA-Public Use
  Company Number: US-009507513-2303USA002948

PATIENT
  Age: 5 Decade
  Sex: Male

DRUGS (2)
  1. VERQUVO [Suspect]
     Active Substance: VERICIGUAT
     Indication: Cardiac failure congestive
     Dosage: 2.5 MILLIGRAM
     Route: 048
  2. VERQUVO [Suspect]
     Active Substance: VERICIGUAT
     Indication: Cardiac failure congestive
     Dosage: 5 MILLIGRAM
     Route: 048

REACTIONS (3)
  - Gastrointestinal disorder [Recovered/Resolved]
  - Abdominal discomfort [Recovered/Resolved]
  - Gastrooesophageal reflux disease [Recovered/Resolved]
